FAERS Safety Report 10889788 (Version 2)
Quarter: 2015Q3

REPORT INFORMATION
  Report Type: Spontaneous
  Country: BR (occurrence: BR)
  Receive Date: 20150305
  Receipt Date: 20150915
  Transmission Date: 20151125
  Serious: Yes (Hospitalization, Other)
  Sender: FDA-Public Use
  Company Number: BR-PFIZER INC-2015066428

PATIENT
  Age: 57 Year
  Sex: Male
  Weight: 63 kg

DRUGS (5)
  1. ALDACTONE [Interacting]
     Active Substance: SPIRONOLACTONE
     Indication: BLOOD POTASSIUM ABNORMAL
  2. ALDACTONE [Suspect]
     Active Substance: SPIRONOLACTONE
     Indication: HYPOKALAEMIA
     Dosage: 50 MG, UNK
     Dates: start: 2002
  3. TRAVATAN [Interacting]
     Active Substance: TRAVOPROST
     Dosage: 1 DROP EACH EYE, DAILY
  4. ALDACTONE [Interacting]
     Active Substance: SPIRONOLACTONE
     Indication: BLOOD CHOLESTEROL
  5. COSOPT [Interacting]
     Active Substance: DORZOLAMIDE HYDROCHLORIDE\TIMOLOL MALEATE
     Dosage: ONE DROP EACH EYE, 2X/DAY

REACTIONS (8)
  - Hyponatraemia [Unknown]
  - Angina pectoris [Unknown]
  - Drug interaction [Unknown]
  - Product use issue [Unknown]
  - Intraocular pressure test abnormal [Unknown]
  - Hypotension [Unknown]
  - Gynaecomastia [Unknown]
  - Presyncope [Unknown]

NARRATIVE: CASE EVENT DATE: 2003
